FAERS Safety Report 14689237 (Version 1)
Quarter: 2018Q1

REPORT INFORMATION
  Report Type: Spontaneous
  Country: JP (occurrence: JP)
  Receive Date: 20180328
  Receipt Date: 20180328
  Transmission Date: 20180509
  Serious: Yes (Hospitalization, Other)
  Sender: FDA-Public Use
  Company Number: JP-PFIZER INC-2018126655

PATIENT
  Age: 62 Year
  Sex: Male

DRUGS (5)
  1. 5-FU [Concomitant]
     Active Substance: FLUOROURACIL
     Dosage: UNK
     Route: 040
  2. CAMPTO [Suspect]
     Active Substance: IRINOTECAN
     Indication: RECTAL CANCER
     Dosage: UNK, 1X/DAY (TOTAL OF 4 CYCLES)
     Route: 041
  3. LEVOFOLINATE [Suspect]
     Active Substance: LEVOLEUCOVORIN CALCIUM
     Indication: RECTAL CANCER
     Dosage: UNK, 1X/DAY (TOTAL OF 4 CYCLES)
     Route: 041
  4. 5-FU [Concomitant]
     Active Substance: FLUOROURACIL
     Dosage: UNK (TOTAL OF 4 CYCLES)
     Route: 041
  5. AVASTIN [Concomitant]
     Active Substance: BEVACIZUMAB
     Dosage: UNK (TOTAL OF 4 CYCLES)
     Route: 041

REACTIONS (1)
  - Necrotising fasciitis [Unknown]
